FAERS Safety Report 8118998-7 (Version None)
Quarter: 2012Q1

REPORT INFORMATION
  Report Type: 
  Country: None (occurrence: None)
  Receive Date: 20120207
  Receipt Date: 20120124
  Transmission Date: 20120608
  Serious: Yes (Death)
  Sender: FDA-Public Use
  Company Number: CA-MYLANLABS-2012S1001979

PATIENT
  Sex: Male

DRUGS (1)
  1. IBUPROFEN [Suspect]
     Dosage: CHRONIC USE
     Route: 064

REACTIONS (3)
  - HAEMORRHAGE INTRACRANIAL [None]
  - MATERNAL EXPOSURE DURING PREGNANCY [None]
  - STILLBIRTH [None]
